FAERS Safety Report 6309805-3 (Version None)
Quarter: 2009Q3

REPORT INFORMATION
  Report Type: 
  Country: None (occurrence: None)
  Receive Date: 20090814
  Receipt Date: 20090807
  Transmission Date: 20100115
  Serious: Yes (Hospitalization)
  Sender: FDA-Public Use
  Company Number: NL-B.I. PHARMACEUTICALS,INC./RIDGEFIELD-2009-NL-00492NL

PATIENT
  Sex: Male

DRUGS (2)
  1. SPIRIVA [Suspect]
  2. OTHER NON SPECIFIED MEDICATION [Concomitant]

REACTIONS (1)
  - RECTAL HAEMORRHAGE [None]
